FAERS Safety Report 5082335-5 (Version None)
Quarter: 2006Q3

REPORT INFORMATION
  Report Type: 
  Country: None (occurrence: None)
  Receive Date: 20060814
  Receipt Date: 20060728
  Transmission Date: 20061208
  Serious: Yes (Other)
  Sender: FDA-Public Use
  Company Number: CHPA2006US07344

PATIENT
  Age: 16 Year
  Sex: Female
  Weight: 59 kg

DRUGS (1)
  1. EXCEDRIN (MIGRAINE) [Suspect]
     Indication: ABDOMINAL PAIN UPPER
     Dosage: 2 DF, BID, ORAL
     Route: 048
     Dates: start: 20060727, end: 20060727

REACTIONS (3)
  - CONVULSION [None]
  - FEELING ABNORMAL [None]
  - MUSCLE TWITCHING [None]
